FAERS Safety Report 6314644-3 (Version None)
Quarter: 2009Q3

REPORT INFORMATION
  Report Type: 
  Country: None (occurrence: None)
  Receive Date: 20090817
  Receipt Date: 20090817
  Transmission Date: 20100115
  Serious: Yes (Death, Hospitalization)
  Sender: FDA-Public Use
  Company Number: None

PATIENT
  Age: 76 Year
  Sex: Male

DRUGS (2)
  1. CARBOPLATIN [Suspect]
     Dosage: 560 MG, 1 DAY, INTRAVENOUS
     Route: 042
     Dates: start: 20090225, end: 20090225
  2. PAXENE [Suspect]
     Dosage: 157 MG, (1 DAY), INTRAVENOUS
     Route: 042
     Dates: start: 20090225, end: 20090225

REACTIONS (10)
  - BACTERAEMIA [None]
  - CARDIO-RESPIRATORY ARREST [None]
  - DIARRHOEA [None]
  - DYSPNOEA [None]
  - FEBRILE BONE MARROW APLASIA [None]
  - INFARCTION [None]
  - NO THERAPEUTIC RESPONSE [None]
  - OEDEMA PERIPHERAL [None]
  - PULMONARY EMBOLISM [None]
  - SHOCK [None]
